FAERS Safety Report 24087726 (Version 1)
Quarter: 2024Q3

REPORT INFORMATION
  Report Type: Spontaneous
  Country: JP (occurrence: JP)
  Receive Date: 20240715
  Receipt Date: 20240715
  Transmission Date: 20241016
  Serious: Yes (Hospitalization, Other)
  Sender: STRIDES
  Company Number: JP-STRIDES ARCOLAB LIMITED-2024SP008230

PATIENT
  Age: 71 Year
  Sex: Male

DRUGS (12)
  1. MYCOPHENOLATE MOFETIL [Suspect]
     Active Substance: MYCOPHENOLATE MOFETIL
     Indication: Immunosuppression
     Dosage: UNK
     Route: 048
  2. MYCOPHENOLATE MOFETIL [Suspect]
     Active Substance: MYCOPHENOLATE MOFETIL
     Indication: Renal transplant
  3. CYCLOSPORINE [Suspect]
     Active Substance: CYCLOSPORINE
     Indication: Immunosuppression
     Route: 065
  4. CYCLOSPORINE [Suspect]
     Active Substance: CYCLOSPORINE
     Indication: Renal transplant
  5. RITUXIMAB [Suspect]
     Active Substance: RITUXIMAB
     Indication: Immunosuppression
     Dosage: 200 MILLIGRAM/SQ. METER
     Route: 042
  6. RITUXIMAB [Suspect]
     Active Substance: RITUXIMAB
     Indication: Renal transplant
  7. METHYLPREDNISOLONE [Suspect]
     Active Substance: METHYLPREDNISOLONE
     Indication: Immunosuppression
     Dosage: UNK
     Route: 065
  8. METHYLPREDNISOLONE [Suspect]
     Active Substance: METHYLPREDNISOLONE
     Indication: Kidney transplant rejection
     Dosage: UNK, LOW DOSE
     Route: 065
  9. EVEROLIMUS [Suspect]
     Active Substance: EVEROLIMUS
     Indication: Immunosuppression
     Dosage: UNK
     Route: 065
  10. EVEROLIMUS [Suspect]
     Active Substance: EVEROLIMUS
     Indication: Kidney transplant rejection
  11. GUSPERIMUS [Suspect]
     Active Substance: GUSPERIMUS
     Indication: Kidney transplant rejection
     Dosage: UNK
     Route: 065
  12. GUSPERIMUS [Suspect]
     Active Substance: GUSPERIMUS
     Indication: Immunosuppression

REACTIONS (6)
  - Kidney transplant rejection [Unknown]
  - Condition aggravated [Unknown]
  - Emphysematous pyelonephritis [Recovered/Resolved]
  - Urinary tract infection [Unknown]
  - Enterococcal infection [Unknown]
  - Bacteroides infection [Unknown]
